FAERS Safety Report 23355761 (Version 1)
Quarter: 2024Q1

REPORT INFORMATION
  Report Type: Spontaneous
  Country: US (occurrence: US)
  Receive Date: 20240102
  Receipt Date: 20240102
  Transmission Date: 20240410
  Serious: No
  Sender: FDA-Public Use
  Company Number: US-STERISCIENCE B.V.-2023-ST-000718

PATIENT
  Age: 42 Year
  Sex: Female

DRUGS (6)
  1. VANCOMYCIN [Suspect]
     Active Substance: VANCOMYCIN
     Indication: Product used for unknown indication
     Dosage: 1250 MILLIGRAM, INFUSION, AT 08:00
     Route: 042
  2. VANCOMYCIN [Suspect]
     Active Substance: VANCOMYCIN
     Dosage: RESTARTED AND COMPLETED AT A DECREASED RATE
     Route: 042
  3. ROPIVACAINE [Concomitant]
     Active Substance: ROPIVACAINE
     Indication: General anaesthesia
     Dosage: 20 MILLILITER, AT 08:40
     Route: 065
  4. ROPIVACAINE [Concomitant]
     Active Substance: ROPIVACAINE
     Dosage: 10 MILLILITER
     Route: 065
  5. LIDOCAINE [Concomitant]
     Active Substance: LIDOCAINE
     Indication: General anaesthesia
     Dosage: 10 MILLILITER, AT 08:40
     Route: 065
  6. NOREPINEPHRINE [Concomitant]
     Active Substance: NOREPINEPHRINE
     Indication: Cardiac dysfunction
     Dosage: UNK
     Route: 042

REACTIONS (1)
  - Urticaria [Recovered/Resolved]
